FAERS Safety Report 9361899 (Version 3)
Quarter: 2014Q1

REPORT INFORMATION
  Report Type: Spontaneous
  Country: FR (occurrence: FR)
  Receive Date: 20130621
  Receipt Date: 20140305
  Transmission Date: 20141002
  Serious: Yes (Life-Threatening, Hospitalization)
  Sender: FDA-Public Use
  Company Number: FR-GLAXOSMITHKLINE-B0899366A

PATIENT
  Age: 72 Year
  Sex: Female

DRUGS (2)
  1. AZANTAC [Suspect]
     Indication: ABDOMINAL PAIN UPPER
     Dosage: 150MG PER DAY
     Route: 048
     Dates: start: 20130516, end: 20130518
  2. PINAVERIUM [Suspect]
     Indication: ABDOMINAL PAIN UPPER
     Route: 048
     Dates: start: 20130516, end: 20130518

REACTIONS (7)
  - Agranulocytosis [Unknown]
  - Jaundice [Unknown]
  - Cholestasis [Unknown]
  - Hepatocellular injury [Unknown]
  - Diarrhoea [Unknown]
  - Pyrexia [Recovered/Resolved]
  - Hypergammaglobulinaemia [Unknown]
